FAERS Safety Report 25899813 (Version 1)
Quarter: 2025Q4

REPORT INFORMATION
  Report Type: Spontaneous
  Country: US (occurrence: US)
  Receive Date: 20251009
  Receipt Date: 20251009
  Transmission Date: 20260117
  Serious: No
  Sender: AMGEN
  Company Number: US-AMGEN-USASP2025198501

PATIENT
  Sex: Male

DRUGS (1)
  1. UPLIZNA [Suspect]
     Active Substance: INEBILIZUMAB-CDON
     Indication: Immunoglobulin G4 related disease
     Dosage: UNK (MAINTENANCE DOSE EVERY 6 MONTHS FOLLOWING 2 INITIAL DOSES)
     Route: 065

REACTIONS (1)
  - Herpes zoster [Unknown]
